FAERS Safety Report 4709769-X (Version None)
Quarter: 2005Q3

REPORT INFORMATION
  Report Type: 
  Country: None (occurrence: None)
  Receive Date: 20050707
  Receipt Date: 20050331
  Transmission Date: 20060218
  Serious: Yes (Other)
  Sender: FDA-Public Use
  Company Number: US_0504114978

PATIENT
  Age: 73 Year
  Sex: Female
  Weight: 107 kg

DRUGS (3)
  1. HUMATROPE [Suspect]
     Indication: PITUITARY TUMOUR BENIGN
     Dosage: 0.2 MG DAY
     Dates: start: 20041102, end: 20050412
  2. PREMPRO [Concomitant]
  3. LEVOTHROID [Concomitant]

REACTIONS (1)
  - MANTLE CELL LYMPHOMA [None]
